FAERS Safety Report 24970154 (Version 1)
Quarter: 2025Q1

REPORT INFORMATION
  Report Type: Spontaneous
  Country: US (occurrence: None)
  Receive Date: 20250213
  Receipt Date: 20250213
  Transmission Date: 20250408
  Serious: No
  Sender: FDA-CTU
  Company Number: None

PATIENT

DRUGS (1)
  1. PROLIA [Suspect]
     Active Substance: DENOSUMAB

REACTIONS (7)
  - Influenza like illness [None]
  - Migraine [None]
  - Dizziness [None]
  - Nausea [None]
  - Dysphagia [None]
  - Gastrointestinal disorder [None]
  - Decreased appetite [None]
